FAERS Safety Report 4964982-1 (Version None)
Quarter: 2006Q2

REPORT INFORMATION
  Report Type: 
  Country: None (occurrence: None)
  Receive Date: 20060403
  Receipt Date: 20060320
  Transmission Date: 20061013
  Serious: Yes (Hospitalization)
  Sender: FDA-Public Use
  Company Number: DEU-2006-0002085

PATIENT
  Age: 73 Year
  Sex: Female
  Weight: 87 kg

DRUGS (2)
  1. OXYCODONE HCL/NALOXONE HCL CR TAB20/10MG(NALOXONE HYDROCHLORIDE, OXYCO [Suspect]
     Indication: BACK PAIN
     Dosage: 20 MG, BID, ORAL
     Route: 048
     Dates: start: 20051110, end: 20060110
  2. OXYCODONE HCL/NALOXONE HCL CR TAB20/10MG(NALOXONE HYDROCHLORIDE, OXYCO [Suspect]
     Indication: BACK PAIN
     Dosage: 20 MG, BID, ORAL
     Route: 048
     Dates: start: 20060111, end: 20060222

REACTIONS (1)
  - CEREBRAL INFARCTION [None]
